FAERS Safety Report 7860074-2 (Version None)
Quarter: 2011Q4

REPORT INFORMATION
  Report Type: 
  Country: None (occurrence: None)
  Receive Date: 20111025
  Receipt Date: 20111013
  Transmission Date: 20120403
  Serious: Yes (Hospitalization, Other)
  Sender: FDA-Public Use
  Company Number: TPA2011A06653

PATIENT
  Age: 80 Year
  Sex: Female
  Weight: 105.6881 kg

DRUGS (6)
  1. ACTOS [Suspect]
     Indication: TYPE 2 DIABETES MELLITUS
     Dosage: 15
     Dates: start: 20041022, end: 20110801
  2. SIMVASTATIN [Concomitant]
  3. ACCUPRIL [Concomitant]
  4. TOPROL-XL [Concomitant]
  5. SYNTHROID [Concomitant]
  6. ASPIRIN [Concomitant]

REACTIONS (3)
  - BLOOD URINE PRESENT [None]
  - URETERIC CANCER LOCAL [None]
  - HAEMOGLOBIN DECREASED [None]
